FAERS Safety Report 16764406 (Version 2)
Quarter: 2019Q3

REPORT INFORMATION
  Report Type: Spontaneous
  Country: US (occurrence: US)
  Receive Date: 20190902
  Receipt Date: 20190909
  Transmission Date: 20191005
  Serious: No
  Sender: FDA-Public Use
  Company Number: US-SHIRE-US201928610

PATIENT
  Sex: Male

DRUGS (4)
  1. LINZESS [Concomitant]
     Active Substance: LINACLOTIDE
     Indication: PRODUCT USED FOR UNKNOWN INDICATION
  2. LACTOSE [Concomitant]
     Active Substance: LACTOSE
     Indication: PRODUCT USED FOR UNKNOWN INDICATION
  3. MOTEGRITY [Suspect]
     Active Substance: PRUCALOPRIDE SUCCINATE
     Indication: CONSTIPATION
     Route: 065
     Dates: start: 20190820
  4. SENNA TABS [Concomitant]
     Active Substance: SENNOSIDES A AND B
     Indication: PRODUCT USED FOR UNKNOWN INDICATION

REACTIONS (2)
  - Muscle spasms [Unknown]
  - Drug ineffective [Not Recovered/Not Resolved]
